FAERS Safety Report 6377349-9 (Version None)
Quarter: 2009Q3

REPORT INFORMATION
  Report Type: 
  Country: None (occurrence: None)
  Receive Date: 20090923
  Receipt Date: 20090923
  Transmission Date: 20100115
  Serious: No
  Sender: FDA-Public Use
  Company Number: None

PATIENT
  Age: 85 Year
  Sex: Female
  Weight: 76 kg

DRUGS (5)
  1. HYDROMORPHONE [Suspect]
     Indication: PAIN
     Dosage: 0/0.2/10 PCA
     Dates: start: 20090709, end: 20090710
  2. HEPARIN [Concomitant]
  3. RANITIDINE [Concomitant]
  4. METRONIDAZOLE [Concomitant]
  5. LEVOFLOX [Concomitant]

REACTIONS (1)
  - LETHARGY [None]
